FAERS Safety Report 7351023-4 (Version None)
Quarter: 2011Q1

REPORT INFORMATION
  Report Type: 
  Country: None (occurrence: None)
  Receive Date: 20110314
  Receipt Date: 20110303
  Transmission Date: 20110831
  Serious: Yes (Other)
  Sender: FDA-Public Use
  Company Number: US-ASTRAZENECA-2011SE11802

PATIENT
  Age: 89 Year
  Sex: Male

DRUGS (3)
  1. CRESTOR [Suspect]
     Route: 048
     Dates: end: 20110101
  2. LEXAPRO [Concomitant]
  3. ASPIRIN [Concomitant]

REACTIONS (2)
  - PANCYTOPENIA [None]
  - MYELODYSPLASTIC SYNDROME [None]
